FAERS Safety Report 6986185-1 (Version None)
Quarter: 2010Q3

REPORT INFORMATION
  Report Type: 
  Country: None (occurrence: None)
  Receive Date: 20100915
  Receipt Date: 20090713
  Transmission Date: 20110219
  Serious: No
  Sender: FDA-Public Use
  Company Number: US-WYE-H09489709

PATIENT
  Sex: Female
  Weight: 64.01 kg

DRUGS (1)
  1. PRISTIQ [Suspect]
     Dates: start: 20090427

REACTIONS (1)
  - PARAESTHESIA ORAL [None]
